FAERS Safety Report 4494155-0 (Version None)
Quarter: 2004Q4

REPORT INFORMATION
  Report Type: 
  Country: None (occurrence: None)
  Receive Date: 20041104
  Receipt Date: 20041104
  Transmission Date: 20050328
  Serious: Yes (Hospitalization)
  Sender: FDA-Public Use
  Company Number: None

PATIENT
  Age: 77 Year
  Sex: Male
  Weight: 78.5 kg

DRUGS (1)
  1. ENOXAPARIN SODIUM [Suspect]
     Indication: COAGULOPATHY
     Dosage: 60 MG Q12 H SC
     Route: 058
     Dates: start: 20041027, end: 20041102

REACTIONS (2)
  - HAEMORRHAGE INTRACRANIAL [None]
  - MENTAL STATUS CHANGES [None]
